FAERS Safety Report 7101903-X (Version None)
Quarter: 2010Q4

REPORT INFORMATION
  Report Type: 
  Country: None (occurrence: None)
  Receive Date: 20101109
  Receipt Date: 20101025
  Transmission Date: 20110411
  Serious: Yes (Hospitalization)
  Sender: FDA-Public Use
  Company Number: 734933

PATIENT
  Age: 47 Year
  Sex: Female

DRUGS (7)
  1. FENTANYL CITRATE INJECTION (FENTANYL CITRATE) [Suspect]
     Indication: ANAESTHESIA
     Dates: start: 20100923, end: 20100923
  2. PROPOFOL [Suspect]
     Indication: ANAESTHESIA
     Dates: start: 20100923, end: 20100923
  3. PANHEMATIN /006861017/) [Suspect]
     Indication: PORPHYRIA ACUTE
     Dosage: SEE IMAGE, INTRAVENOUS
     Route: 042
     Dates: start: 20100701, end: 20100801
  4. PANHEMATIN /006861017/) [Suspect]
     Indication: PORPHYRIA ACUTE
     Dosage: SEE IMAGE, INTRAVENOUS
     Route: 042
     Dates: start: 20100923, end: 20100923
  5. PANHEMATIN /006861017/) [Suspect]
     Indication: PORPHYRIA ACUTE
     Dosage: SEE IMAGE, INTRAVENOUS
     Route: 042
     Dates: start: 20100401
  6. PANHEMATIN /006861017/) [Suspect]
     Indication: PORPHYRIA ACUTE
     Dosage: SEE IMAGE, INTRAVENOUS
     Route: 042
     Dates: start: 20100601
  7. VERSED [Suspect]
     Indication: ANAESTHESIA
     Dates: start: 20100923, end: 20100923

REACTIONS (5)
  - CONDITION AGGRAVATED [None]
  - DRUG ERUPTION [None]
  - DRUG INTERACTION [None]
  - PORPHYRIA ACUTE [None]
  - RASH PAPULAR [None]
